FAERS Safety Report 14726670 (Version 2)
Quarter: 2018Q2

REPORT INFORMATION
  Report Type: Spontaneous
  Country: US (occurrence: US)
  Receive Date: 20180406
  Receipt Date: 20180430
  Transmission Date: 20180711
  Serious: Yes (Other)
  Sender: FDA-Public Use
  Company Number: US-BEH-2018089393

PATIENT
  Sex: Female
  Weight: 68.27 kg

DRUGS (15)
  1. HIZENTRA [Suspect]
     Active Substance: HUMAN IMMUNOGLOBULIN G
     Indication: HYPOGAMMAGLOBULINAEMIA
     Dosage: UNK
     Route: 058
  2. DEXILANT [Concomitant]
     Active Substance: DEXLANSOPRAZOLE
     Route: 065
  3. FLUTICASONE. [Concomitant]
     Active Substance: FLUTICASONE
     Route: 065
  4. FAMOTIDINE. [Concomitant]
     Active Substance: FAMOTIDINE
     Route: 065
  5. LIDOCAINE. [Concomitant]
     Active Substance: LIDOCAINE
     Route: 065
  6. HIZENTRA [Suspect]
     Active Substance: HUMAN IMMUNOGLOBULIN G
     Indication: IMMUNODEFICIENCY COMMON VARIABLE
     Dosage: UNK
     Route: 058
  7. DIPHENHYDRAMINE. [Concomitant]
     Active Substance: DIPHENHYDRAMINE
     Route: 065
  8. HIZENTRA [Suspect]
     Active Substance: HUMAN IMMUNOGLOBULIN G
     Dosage: UNK
     Route: 058
  9. OLMESARTAN [Concomitant]
     Active Substance: OLMESARTAN
     Route: 065
  10. HIZENTRA [Suspect]
     Active Substance: HUMAN IMMUNOGLOBULIN G
     Dosage: 15 G, QW
     Route: 058
     Dates: start: 20171024
  11. MAGNESIUM [Concomitant]
     Active Substance: MAGNESIUM
     Route: 065
  12. STERILE WATER [Concomitant]
     Active Substance: WATER
     Route: 065
  13. SODIUM CHLORIDE. [Concomitant]
     Active Substance: SODIUM CHLORIDE
     Route: 065
  14. LMX                                /00033401/ [Concomitant]
     Route: 065
  15. EPINEPHRINE. [Concomitant]
     Active Substance: EPINEPHRINE
     Route: 065

REACTIONS (6)
  - Fatigue [Unknown]
  - Erythema [Unknown]
  - Back pain [Unknown]
  - Hypothermia [Unknown]
  - Asthma [Unknown]
  - Pruritus [Unknown]
